FAERS Safety Report 7222071-X (Version None)
Quarter: 2011Q1

REPORT INFORMATION
  Report Type: 
  Country: None (occurrence: None)
  Receive Date: 20110112
  Receipt Date: 20101229
  Transmission Date: 20110831
  Serious: Yes (Death)
  Sender: FDA-Public Use
  Company Number: CA-CELGENEUS-028-21880-10123197

PATIENT
  Sex: Male

DRUGS (11)
  1. NORVIR [Concomitant]
     Route: 065
  2. ACFOLIQUE [Concomitant]
     Route: 048
  3. CENTRUM FORTE [Concomitant]
     Route: 065
  4. PANTOLOC [Concomitant]
     Route: 065
  5. BENADRYL [Concomitant]
     Route: 065
  6. TRUVADA [Concomitant]
     Route: 065
  7. REVLIMID [Suspect]
     Route: 048
     Dates: start: 20101214
  8. CORTISONE [Concomitant]
     Route: 065
  9. FLOMAX [Concomitant]
     Route: 065
  10. MONOCOR [Concomitant]
     Route: 065
  11. REYATAZ [Concomitant]
     Route: 065

REACTIONS (1)
  - DEATH [None]
